FAERS Safety Report 24171583 (Version 2)
Quarter: 2024Q3

REPORT INFORMATION
  Report Type: Spontaneous
  Country: JP (occurrence: JP)
  Receive Date: 20240805
  Receipt Date: 20240819
  Transmission Date: 20241017
  Serious: Yes (Other)
  Sender: JOHNSON AND JOHNSON
  Company Number: JP-BAYER-2024A111835

PATIENT
  Age: 83 Year
  Sex: Female

DRUGS (15)
  1. XARELTO [Suspect]
     Active Substance: RIVAROXABAN
     Indication: Deep vein thrombosis
     Dosage: 15 MG, QD
     Route: 048
     Dates: start: 20220517, end: 20240731
  2. XYZAL [Concomitant]
     Active Substance: LEVOCETIRIZINE DIHYDROCHLORIDE
  3. OLOPATADINE [Concomitant]
     Active Substance: OLOPATADINE
  4. DELGOCITINIB [Concomitant]
     Active Substance: DELGOCITINIB
  5. VOALLA [Concomitant]
  6. UREA [Concomitant]
     Active Substance: UREA
  7. CILNIDIPINE [Concomitant]
     Active Substance: CILNIDIPINE
  8. MIYA-BM [Concomitant]
     Active Substance: CLOSTRIDIUM BUTYRICUM SPORES STRAIN M-55
  9. MAGNESIUM OXIDE [Concomitant]
     Active Substance: MAGNESIUM OXIDE
  10. NABOAL [DICLOFENAC SODIUM] [Concomitant]
  11. TOVIAZ [Concomitant]
     Active Substance: FESOTERODINE FUMARATE
  12. ELDECALCITOL [Concomitant]
     Active Substance: ELDECALCITOL
  13. CHLORPHENESIN CARBAMATE [Concomitant]
     Active Substance: CHLORPHENESIN CARBAMATE
  14. MINODRONIC ACID [Concomitant]
     Active Substance: MINODRONIC ACID
  15. FLUOROMETHOLONE [Concomitant]
     Active Substance: FLUOROMETHOLONE

REACTIONS (3)
  - Thrombosis [Unknown]
  - Thrombosis [Not Recovered/Not Resolved]
  - Oedema peripheral [Not Recovered/Not Resolved]

NARRATIVE: CASE EVENT DATE: 20220501
